FAERS Safety Report 8187597-3 (Version None)
Quarter: 2012Q1

REPORT INFORMATION
  Report Type: 
  Country: None (occurrence: None)
  Receive Date: 20120306
  Receipt Date: 20120229
  Transmission Date: 20120608
  Serious: Yes (Life-Threatening, Hospitalization)
  Sender: FDA-Public Use
  Company Number: PHHY2012NL018326

PATIENT
  Sex: Male

DRUGS (4)
  1. ANTI CANCER AGENTS [Interacting]
  2. MINOCYCLINE SANDOZ [Suspect]
     Indication: SKIN INFECTION
     Dosage: 1 DF, QD
     Route: 048
     Dates: start: 20120206, end: 20120207
  3. ACENOCOUMAROL [Interacting]
     Route: 048
  4. CYTOSTATICA [Interacting]

REACTIONS (1)
  - DRUG INTERACTION [None]
